FAERS Safety Report 21375301 (Version 1)
Quarter: 2022Q3

REPORT INFORMATION
  Report Type: Spontaneous
  Country: US (occurrence: US)
  Receive Date: 20220926
  Receipt Date: 20220926
  Transmission Date: 20221026
  Serious: Yes (Other)
  Sender: FDA-Public Use
  Company Number: US-NOVARTISPH-NVSC2022US214787

PATIENT
  Sex: Female

DRUGS (1)
  1. ZOFRAN [Suspect]
     Active Substance: ONDANSETRON HYDROCHLORIDE
     Indication: Nausea
     Dosage: UNK, OTHER (FOUR TIMES A MONTH)
     Route: 065

REACTIONS (8)
  - Multiple sclerosis [Unknown]
  - Facial paresis [Unknown]
  - Hypoaesthesia [Unknown]
  - Paraesthesia [Unknown]
  - Vision blurred [Unknown]
  - Tinnitus [Unknown]
  - Limb injury [Unknown]
  - Headache [Unknown]
